FAERS Safety Report 9402026 (Version 1)
Quarter: 2013Q3

REPORT INFORMATION
  Report Type: Spontaneous
  Country: FR (occurrence: FR)
  Receive Date: 20130716
  Receipt Date: 20130716
  Transmission Date: 20140515
  Serious: Yes (Hospitalization)
  Sender: FDA-Public Use
  Company Number: PHHY2013FR074311

PATIENT
  Sex: 0

DRUGS (9)
  1. TEGRETOL [Suspect]
     Indication: EPILEPSY
     Dosage: 250 MG, DAILY
     Route: 048
     Dates: start: 20130514, end: 20130611
  2. TEGRETOL [Suspect]
     Dosage: 300 MG, DAILY
     Route: 048
     Dates: start: 20130611, end: 20130618
  3. TEGRETOL [Suspect]
     Dosage: 250 MG, DAILY
     Route: 048
     Dates: start: 20130618
  4. URBANYL [Concomitant]
     Dosage: UNK UKN, UNK
  5. SABRIL [Concomitant]
     Dosage: UNK UKN, UNK
  6. INEXIUM//ESOMEPRAZOLE MAGNESIUM [Concomitant]
     Dosage: UNK UKN, UNK
  7. CALCIDOSE [Concomitant]
     Dosage: UNK UKN, UNK
  8. UVESTEROL D [Concomitant]
     Dosage: 1500 IU/ML, UNK
  9. SYNACTHEN [Concomitant]
     Dosage: UNK UKN, UNK

REACTIONS (1)
  - Condition aggravated [Not Recovered/Not Resolved]
